FAERS Safety Report 6491019-8 (Version None)
Quarter: 2009Q4

REPORT INFORMATION
  Report Type: 
  Country: None (occurrence: None)
  Receive Date: 20091207
  Receipt Date: 20091120
  Transmission Date: 20100525
  Serious: Yes (Death, Hospitalization)
  Sender: FDA-Public Use
  Company Number: 2009AL007419

PATIENT
  Age: 69 Year
  Sex: Female

DRUGS (5)
  1. FEVERALL [Suspect]
  2. COLECALIFEROL [Concomitant]
  3. CALCIUM [Concomitant]
  4. DICLOFENAC [Concomitant]
  5. STRONTIUM RANELATE [Concomitant]

REACTIONS (6)
  - BLOOD CREATININE INCREASED [None]
  - DRUG RASH WITH EOSINOPHILIA AND SYSTEMIC SYMPTOMS [None]
  - HEPATIC NECROSIS [None]
  - HEPATITIS FULMINANT [None]
  - HUMAN HERPES VIRUS 6 SEROLOGY POSITIVE [None]
  - RENAL DISORDER [None]
